FAERS Safety Report 16943938 (Version 1)
Quarter: 2019Q4

REPORT INFORMATION
  Report Type: Report from Study
  Country: IT (occurrence: IT)
  Receive Date: 20191022
  Receipt Date: 20191022
  Transmission Date: 20200122
  Serious: Yes (Other)
  Sender: FDA-Public Use
  Company Number: IT-TEVA-2019-IT-1124342

PATIENT
  Age: 83 Year
  Sex: Male

DRUGS (7)
  1. ESIDREX [Suspect]
     Active Substance: HYDROCHLOROTHIAZIDE
     Indication: PLATELET AGGREGATION
     Dosage: 0.5 DOSAGE FORMS 1 DAYS
     Route: 048
     Dates: start: 20180711, end: 20190711
  2. TARDYFER [Concomitant]
     Active Substance: FERROUS SULFATE
  3. TOTALIP 40 MG COMPRESSE RIVESTITE CON FILM [Concomitant]
  4. CARDIOASPIRIN [Concomitant]
     Active Substance: ASPIRIN
  5. PLAVIX [Concomitant]
     Active Substance: CLOPIDOGREL BISULFATE
  6. VALSARTAN. [Suspect]
     Active Substance: VALSARTAN
     Indication: HYPERTENSION
     Dosage: 160 MG 1 DAYS
     Route: 048
     Dates: start: 20180711, end: 20190711
  7. PANTOPRAZOLE [Concomitant]
     Active Substance: PANTOPRAZOLE
     Dosage: 20 MG 1 DAYS

REACTIONS (1)
  - Hypertensive crisis [Recovering/Resolving]

NARRATIVE: CASE EVENT DATE: 20190711
